FAERS Safety Report 9414169 (Version 2)
Quarter: 2013Q3

REPORT INFORMATION
  Report Type: Spontaneous
  Country: IT (occurrence: IT)
  Receive Date: 20130723
  Receipt Date: 20130805
  Transmission Date: 20140515
  Serious: Yes (Hospitalization)
  Sender: FDA-Public Use
  Company Number: IT-RANBAXY-2013R1-71378

PATIENT
  Age: 27 Year
  Sex: Male

DRUGS (1)
  1. AMOXICILLINA E ACIDO CLAVULANICO RANBAXY 875MG+125MG POLVERE PER SOSPE [Suspect]
     Indication: PHARYNGITIS
     Dosage: 2 G DAILY
     Route: 048
     Dates: start: 20130705, end: 20130707

REACTIONS (2)
  - Dyspnoea [Recovered/Resolved]
  - Pharyngeal oedema [Recovered/Resolved]
